FAERS Safety Report 8564539-X (Version None)
Quarter: 2012Q3

REPORT INFORMATION
  Report Type: 
  Country: None (occurrence: None)
  Receive Date: 20120803
  Receipt Date: 20120730
  Transmission Date: 20120928
  Serious: Yes (Hospitalization)
  Sender: FDA-Public Use
  Company Number: US-009507513-1208USA000040

PATIENT

DRUGS (6)
  1. RAMIPRIL [Concomitant]
  2. NOVOLOG [Concomitant]
  3. GLIMEPIRIDE [Concomitant]
  4. LANTUS [Concomitant]
  5. METFORMIN HYDROCHLORIDE [Concomitant]
  6. JANUVIA [Suspect]
     Indication: DIABETES MELLITUS
     Dosage: 100 MG, QD
     Route: 048

REACTIONS (1)
  - PANCREATITIS ACUTE [None]
